FAERS Safety Report 5928396-X (Version None)
Quarter: 2008Q4

REPORT INFORMATION
  Report Type: 
  Country: None (occurrence: None)
  Receive Date: 20081023
  Receipt Date: 20081013
  Transmission Date: 20090506
  Serious: Yes (Other)
  Sender: FDA-Public Use
  Company Number: US-PFIZER INC-2008085968

PATIENT
  Sex: Female

DRUGS (1)
  1. LIPITOR [Suspect]
     Indication: BLOOD CHOLESTEROL INCREASED
     Dates: end: 20080601

REACTIONS (8)
  - BLOOD CHOLESTEROL INCREASED [None]
  - BONE PAIN [None]
  - CATARACT [None]
  - CHROMATURIA [None]
  - HEPATIC PAIN [None]
  - MALAISE [None]
  - MYALGIA [None]
  - URINARY TRACT INFECTION [None]
